FAERS Safety Report 13442386 (Version 1)
Quarter: 2017Q2

REPORT INFORMATION
  Report Type: Spontaneous
  Country: US (occurrence: US)
  Receive Date: 20170413
  Receipt Date: 20170413
  Transmission Date: 20170830
  Serious: Yes (Hospitalization, Other)
  Sender: FDA-Public Use
  Company Number: None

PATIENT
  Age: 45 Year
  Sex: Female
  Weight: 91.8 kg

DRUGS (13)
  1. ESCITALOPRAM [Suspect]
     Active Substance: ESCITALOPRAM OXALATE
     Indication: ANXIETY
     Dosage: ?          QUANTITY:1 TABLET(S);?
     Route: 048
     Dates: start: 20170407, end: 20170407
  2. VENTOLIN [Concomitant]
     Active Substance: ALBUTEROL SULFATE
  3. OMEGA FISH OIL [Concomitant]
     Active Substance: FISH OIL\OMEGA-3 FATTY ACIDS
  4. AMITRIPTYLINE [Concomitant]
     Active Substance: AMITRIPTYLINE
  5. APPLE CIDER VINEGAR TABLETS [Concomitant]
  6. CALCIUM [Concomitant]
     Active Substance: CALCIUM
  7. KRILL OIL [Concomitant]
     Active Substance: DIETARY SUPPLEMENT
  8. RIZATRIPTAN BENZOATE. [Concomitant]
     Active Substance: RIZATRIPTAN BENZOATE
  9. MULTI VITAMIN [Concomitant]
     Active Substance: VITAMINS
  10. EXTRA VIRGIN COCONUT OIL [Concomitant]
  11. VITAMIN B12 [Concomitant]
     Active Substance: CYANOCOBALAMIN
  12. CHLORDIAZEPOXIDE. [Concomitant]
     Active Substance: CHLORDIAZEPOXIDE
  13. VITAMIN D [Concomitant]
     Active Substance: CHOLECALCIFEROL

REACTIONS (9)
  - Burning sensation [None]
  - Dysphonia [None]
  - Paraesthesia [None]
  - Tremor [None]
  - Catatonia [None]
  - Hypoaesthesia [None]
  - Gait disturbance [None]
  - Palpitations [None]
  - Fine motor skill dysfunction [None]

NARRATIVE: CASE EVENT DATE: 20170407
